FAERS Safety Report 10712018 (Version 1)
Quarter: 2015Q1

REPORT INFORMATION
  Report Type: Spontaneous
  Country: US (occurrence: US)
  Receive Date: 20150114
  Receipt Date: 20150114
  Transmission Date: 20150721
  Serious: No
  Sender: FDA-Public Use
  Company Number: US-ALLERGAN-1406261US

PATIENT
  Age: 52 Year
  Sex: Female

DRUGS (3)
  1. ACZONE [Suspect]
     Active Substance: DAPSONE
     Indication: ACNE
     Dosage: UNK, QHS
     Route: 061
  2. OIL OF OLAY FACE CREAM [Concomitant]
  3. VITAMINS                           /00067501/ [Concomitant]
     Active Substance: VITAMINS

REACTIONS (1)
  - Drug ineffective [Unknown]
